FAERS Safety Report 15493534 (Version 7)
Quarter: 2019Q1

REPORT INFORMATION
  Report Type: Report from Study
  Country: CO (occurrence: CO)
  Receive Date: 20181012
  Receipt Date: 20190326
  Transmission Date: 20190417
  Serious: Yes (Hospitalization)
  Sender: FDA-Public Use
  Company Number: CO-SA-2018SA272375

PATIENT
  Age: 26 Year
  Sex: Male
  Weight: 67 kg

DRUGS (1)
  1. ALEMTUZUMAB [Suspect]
     Active Substance: ALEMTUZUMAB
     Indication: MULTIPLE SCLEROSIS
     Dosage: 12 MG, QD
     Route: 041
     Dates: start: 20180925, end: 20180929

REACTIONS (21)
  - Muscular weakness [Recovered/Resolved]
  - Rhinorrhoea [Recovered/Resolved]
  - Dyspnoea [Recovered/Resolved]
  - Vision blurred [Recovered/Resolved]
  - Tinnitus [Recovered/Resolved]
  - Gait disturbance [Recovered/Resolved]
  - Vomiting [Recovered/Resolved]
  - Headache [Recovered/Resolved]
  - Rash [Recovered/Resolved]
  - Psychomotor skills impaired [Recovered/Resolved]
  - Lymphocyte count decreased [Recovered/Resolved]
  - Hypoaesthesia [Not Recovered/Not Resolved]
  - Chest pain [Recovered/Resolved]
  - White blood cell count decreased [Not Recovered/Not Resolved]
  - Hyperhidrosis [Recovered/Resolved]
  - Disorientation [Recovered/Resolved]
  - Asthenia [Recovered/Resolved]
  - Tachycardia [Recovered/Resolved]
  - Insomnia [Recovered/Resolved]
  - Dizziness [Recovered/Resolved]
  - Visual impairment [Recovered/Resolved]

NARRATIVE: CASE EVENT DATE: 20180928
